FAERS Safety Report 18441233 (Version 11)
Quarter: 2023Q1

REPORT INFORMATION
  Report Type: Spontaneous
  Country: US (occurrence: US)
  Receive Date: 20201029
  Receipt Date: 20230202
  Transmission Date: 20230417
  Serious: Yes (Hospitalization, Other)
  Sender: FDA-Public Use
  Company Number: US-PFIZER INC-2020419985

PATIENT
  Age: 82 Year
  Sex: Female
  Weight: 76.417 kg

DRUGS (8)
  1. IBRANCE [Suspect]
     Active Substance: PALBOCICLIB
     Indication: Neoplasm malignant
     Dosage: 75 MG
     Dates: start: 20201020
  2. IBRANCE [Suspect]
     Active Substance: PALBOCICLIB
     Dosage: 75 MG
     Dates: start: 20201028
  3. IBRANCE [Suspect]
     Active Substance: PALBOCICLIB
     Dosage: 75 MG, CYCLIC (TAKE 75MG ORAL FOR 2 WEEKS ON, 2 WEEKS OFF CYCLE)
     Route: 048
  4. IBRANCE [Suspect]
     Active Substance: PALBOCICLIB
     Dosage: 75 MG, CYCLIC (TAKE 75MG ORAL FOR 2 WEEKS ON, 2 WEEKS OFF CYCLE)
     Dates: start: 2020
  5. CITALOPRAM [Concomitant]
     Active Substance: CITALOPRAM HYDROBROMIDE
     Dosage: 20 MG
     Dates: start: 2020
  6. METFORMIN [Concomitant]
     Active Substance: METFORMIN HYDROCHLORIDE
     Dosage: UNK, 2X/DAY (500 2 DAILY)
  7. GLIMEPIRIDE [Concomitant]
     Active Substance: GLIMEPIRIDE
     Dosage: UNK, 2X/DAY
  8. LETROZOLE [Concomitant]
     Active Substance: LETROZOLE
     Indication: Neoplasm malignant
     Dosage: 2.5 MG, 1X/DAY
     Dates: start: 2020

REACTIONS (11)
  - Alopecia [Not Recovered/Not Resolved]
  - Diabetes mellitus [Unknown]
  - Fatigue [Unknown]
  - Diarrhoea [Recovered/Resolved]
  - Nausea [Recovered/Resolved]
  - Retching [Recovered/Resolved]
  - Abdominal discomfort [Recovered/Resolved]
  - Malaise [Unknown]
  - Confusional state [Unknown]
  - Hypoacusis [Unknown]
  - Off label use [Unknown]

NARRATIVE: CASE EVENT DATE: 20200101
